FAERS Safety Report 18057449 (Version 1)
Quarter: 2020Q3

REPORT INFORMATION
  Report Type: Spontaneous
  Country: FR (occurrence: FR)
  Receive Date: 20200722
  Receipt Date: 20200722
  Transmission Date: 20201103
  Serious: Yes (Other)
  Sender: FDA-Public Use
  Company Number: NVSC2020FR201913

PATIENT
  Age: 1 Year
  Sex: Female
  Weight: 8.5 kg

DRUGS (2)
  1. PRIORIX [Suspect]
     Active Substance: MEASLES-MUMPS-RUBELLA VIRUS VACCINE
     Indication: IMMUNISATION
     Dosage: 1 DF (TOTAL)
     Route: 058
     Dates: start: 20191127, end: 20191127
  2. AMOXICILLINE [Suspect]
     Active Substance: AMOXICILLIN
     Indication: LARYNGITIS
     Dosage: 88 MG/KG, QD
     Route: 048
     Dates: start: 20191203

REACTIONS (4)
  - Erythema [Recovering/Resolving]
  - Eyelid oedema [Recovered/Resolved]
  - Anaphylactic reaction [Recovering/Resolving]
  - Rash [Recovered/Resolved]

NARRATIVE: CASE EVENT DATE: 20191208
